FAERS Safety Report 15384854 (Version 5)
Quarter: 2019Q1

REPORT INFORMATION
  Report Type: Report from Study
  Country: US (occurrence: US)
  Receive Date: 20180914
  Receipt Date: 20190124
  Transmission Date: 20190417
  Serious: No
  Sender: FDA-Public Use
  Company Number: PHEH2018US037553

PATIENT
  Age: 66 Year
  Sex: Male

DRUGS (2)
  1. COSENTYX [Suspect]
     Active Substance: SECUKINUMAB
     Indication: PSORIASIS
     Dosage: 150 MG, QW
     Route: 058
     Dates: start: 20180829
  2. COSENTYX [Suspect]
     Active Substance: SECUKINUMAB
     Dosage: 150 MG, QMO
     Route: 058
     Dates: start: 20181130

REACTIONS (8)
  - Dyspnoea [Unknown]
  - Rhinorrhoea [Not Recovered/Not Resolved]
  - Pain in extremity [Recovering/Resolving]
  - Secretion discharge [Recovering/Resolving]
  - Arthralgia [Unknown]
  - Nasopharyngitis [Not Recovered/Not Resolved]
  - Cough [Not Recovered/Not Resolved]
  - Dysstasia [Unknown]

NARRATIVE: CASE EVENT DATE: 20180902
